FAERS Safety Report 20805099 (Version 2)
Quarter: 2022Q2

REPORT INFORMATION
  Report Type: Spontaneous
  Country: US (occurrence: US)
  Receive Date: 20220509
  Receipt Date: 20220617
  Transmission Date: 20220721
  Serious: No
  Sender: FDA-Public Use
  Company Number: US-BRISTOL-MYERS SQUIBB COMPANY-2022-025293

PATIENT
  Age: 64 Year
  Sex: Female

DRUGS (2)
  1. REVLIMID [Suspect]
     Active Substance: LENALIDOMIDE
     Indication: Plasma cell myeloma in remission
     Dosage: DOSE: 5 MILLIGRAM, FREQ: TAKE 1 CAPSULE BY MOUTH EVERYDAY FOR 28 DAYS
     Route: 048
     Dates: start: 20200131
  2. REVLIMID [Suspect]
     Active Substance: LENALIDOMIDE
     Dosage: UNAVILABLE
     Route: 048

REACTIONS (1)
  - Diarrhoea [Unknown]
